FAERS Safety Report 6099373-6 (Version None)
Quarter: 2009Q1

REPORT INFORMATION
  Report Type: 
  Country: None (occurrence: None)
  Receive Date: 20090303
  Receipt Date: 20090218
  Transmission Date: 20090719
  Serious: Yes (Other)
  Sender: FDA-Public Use
  Company Number: US-PFIZER INC-2008096265

PATIENT
  Sex: Male
  Weight: 53.1 kg

DRUGS (8)
  1. CHANTIX [Suspect]
     Indication: SMOKING CESSATION THERAPY
     Dosage: UNK
     Dates: start: 20080801, end: 20081120
  2. LIPITOR [Concomitant]
  3. PLAVIX [Concomitant]
  4. TOPROL-XL [Concomitant]
  5. ACETYLSALICYLIC ACID [Concomitant]
  6. CELEBREX [Concomitant]
  7. HYDROCODONE [Concomitant]
  8. MUSCLE RELAXANTS [Concomitant]

REACTIONS (4)
  - ARTERIAL OCCLUSIVE DISEASE [None]
  - DRUG SCREEN FALSE POSITIVE [None]
  - HEART VALVE INCOMPETENCE [None]
  - STENT OCCLUSION [None]
